FAERS Safety Report 8366408-7 (Version None)
Quarter: 2012Q2

REPORT INFORMATION
  Report Type: 
  Country: None (occurrence: None)
  Receive Date: 20120517
  Receipt Date: 20120511
  Transmission Date: 20120825
  Serious: Yes (Hospitalization, Other)
  Sender: FDA-Public Use
  Company Number: DE-PFIZER INC-2012115079

PATIENT
  Age: 26 Year
  Sex: Male
  Weight: 70 kg

DRUGS (12)
  1. METHADONE [Suspect]
     Indication: SUBSTANCE USE
     Dosage: 12 ML, DAILY
  2. NICOTINE [Suspect]
     Dosage: ONE PACKAGE PER DAY
  3. MAGNESIOCARD [Suspect]
     Dosage: UNK
  4. LYRICA [Suspect]
     Dosage: 75 MG, 4X/DAY
  5. LYRICA [Suspect]
     Dosage: 300 MG, 4X/DAY
  6. DOMINAL FORTE [Suspect]
     Dosage: 40 MG, AS NEEDED
  7. LYRICA [Suspect]
     Dosage: 600 MG, DAILY
  8. METHADONE [Suspect]
     Dosage: 5-10 ML/DAY
  9. LYRICA [Suspect]
     Dosage: 300 MG, 3X/DAY
  10. LYRICA [Suspect]
     Dosage: 75 MG, DAILY
     Dates: end: 20110705
  11. COCAINE [Suspect]
     Dosage: 5 MG, 2-3X/ DAY
     Route: 042
  12. HEROIN [Suspect]
     Dosage: UNK
     Route: 042

REACTIONS (7)
  - MENTAL DISORDER [None]
  - ABNORMAL BEHAVIOUR [None]
  - WITHDRAWAL SYNDROME [None]
  - POLYSUBSTANCE DEPENDENCE [None]
  - DRUG ABUSE [None]
  - POOR QUALITY SLEEP [None]
  - NIGHTMARE [None]
